FAERS Safety Report 19392432 (Version 1)
Quarter: 2021Q2

REPORT INFORMATION
  Report Type: Spontaneous
  Country: UA (occurrence: UA)
  Receive Date: 20210608
  Receipt Date: 20210608
  Transmission Date: 20210717
  Serious: Yes (Hospitalization, Other)
  Sender: FDA-Public Use
  Company Number: UA-ASTRAZENECA-2021A500426

PATIENT
  Age: 47 Year
  Sex: Male

DRUGS (2)
  1. ASPIRIN. [Concomitant]
     Active Substance: ASPIRIN
  2. BRILINTA [Suspect]
     Active Substance: TICAGRELOR
     Indication: ANGINA UNSTABLE
     Route: 048
     Dates: start: 20210511

REACTIONS (1)
  - Vascular stent thrombosis [Recovering/Resolving]

NARRATIVE: CASE EVENT DATE: 20210520
